FAERS Safety Report 7003607-0 (Version None)
Quarter: 2010Q3

REPORT INFORMATION
  Report Type: 
  Country: None (occurrence: None)
  Receive Date: 20100917
  Receipt Date: 20100907
  Transmission Date: 20110219
  Serious: Yes (Hospitalization, Other)
  Sender: FDA-Public Use
  Company Number: 8023510

PATIENT
  Sex: Female

DRUGS (3)
  1. KEPPRA [Suspect]
     Indication: EPILEPSY
     Dosage: (1500 MG, DOSE FREQ.: DAILY ORAL)
     Route: 048
     Dates: start: 20021010
  2. PRENATAL [Concomitant]
  3. FOLIC ACID [Concomitant]

REACTIONS (10)
  - AUTOIMMUNE THYROIDITIS [None]
  - BACK PAIN [None]
  - BREAST ENGORGEMENT [None]
  - CONVERSION DISORDER [None]
  - DRUG EXPOSURE DURING PREGNANCY [None]
  - MUSCLE SPASMS [None]
  - PREGNANCY [None]
  - PREMATURE LABOUR [None]
  - SUICIDAL IDEATION [None]
  - WHITE BLOOD CELL COUNT INCREASED [None]
